FAERS Safety Report 6103693-6 (Version None)
Quarter: 2009Q1

REPORT INFORMATION
  Report Type: 
  Country: None (occurrence: None)
  Receive Date: 20090305
  Receipt Date: 20090224
  Transmission Date: 20090719
  Serious: Yes (Hospitalization, Other)
  Sender: FDA-Public Use
  Company Number: US-AVENTIS-200812965US

PATIENT
  Sex: Male
  Weight: 74.8 kg

DRUGS (10)
  1. LANTUS [Suspect]
     Route: 058
  2. LANTUS [Suspect]
  3. TOPROL-XL [Suspect]
     Indication: HYPERTENSION
     Route: 048
     Dates: end: 20080417
  4. HYDROCHLOROTHIAZIDE [Suspect]
     Indication: HYPERTENSION
     Route: 048
     Dates: end: 20080417
  5. CLONIDINE HCL [Concomitant]
     Route: 048
     Dates: start: 20080418
  6. NORVASC [Concomitant]
     Route: 048
     Dates: start: 20080418
  7. HUMALOG [Concomitant]
     Dosage: DOSE: 5 WITH MEALS
     Route: 058
  8. XANAX [Concomitant]
     Indication: INSOMNIA
     Route: 048
     Dates: start: 20080418
  9. INSULIN [Concomitant]
     Dosage: DOSE: UNK
  10. UNKNOWN DRUG [Concomitant]
     Dosage: DOSE: UNK

REACTIONS (8)
  - ASTHENIA [None]
  - BLOOD GLUCOSE INCREASED [None]
  - BRADYCARDIA [None]
  - CONFUSIONAL STATE [None]
  - DEPRESSED LEVEL OF CONSCIOUSNESS [None]
  - DRUG INEFFECTIVE [None]
  - HYPOGLYCAEMIC UNCONSCIOUSNESS [None]
  - HYPOKALAEMIA [None]
